FAERS Safety Report 5233439-5 (Version None)
Quarter: 2007Q1

REPORT INFORMATION
  Report Type: 
  Country: None (occurrence: None)
  Receive Date: 20070206
  Receipt Date: 20070125
  Transmission Date: 20070707
  Serious: Yes (Other)
  Sender: FDA-Public Use
  Company Number: 2007JP000348

PATIENT
  Age: 91 Year
  Sex: Male

DRUGS (4)
  1. VESICARE [Suspect]
     Dosage: 5 MG, UID/QD, ORAL
     Route: 048
     Dates: start: 20061222, end: 20061223
  2. KAMAG G (MAGNESIUM OXIDE) PER ORAL NOS [Concomitant]
  3. HARNAL (TAMSULOSIN) FORMULATION UNKNOWN [Concomitant]
  4. HI-Z (ORYZANOL) PER ORAL NOS [Concomitant]

REACTIONS (2)
  - DELUSION [None]
  - HALLUCINATION [None]
